FAERS Safety Report 6368835-6 (Version None)
Quarter: 2009Q3

REPORT INFORMATION
  Report Type: 
  Country: None (occurrence: None)
  Receive Date: 20090922
  Receipt Date: 20090909
  Transmission Date: 20100115
  Serious: No
  Sender: FDA-Public Use
  Company Number: US-ELI_LILLY_AND_COMPANY-US200905005078

PATIENT
  Sex: Male
  Weight: 82.993 kg

DRUGS (7)
  1. CYMBALTA [Suspect]
     Indication: DEPRESSION
     Dosage: 30 MG, DAILY (1/D)
     Dates: start: 20090101, end: 20090101
  2. CYMBALTA [Suspect]
     Dosage: 60 MG, DAILY (1/D)
     Dates: start: 20090501, end: 20090501
  3. CYMBALTA [Suspect]
     Dosage: 30 MG, DAILY (1/D)
     Dates: start: 20090501
  4. OMEPRAZOLE [Concomitant]
     Indication: GASTRIC DISORDER
     Dosage: 20 MG, DAILY (1/D)
     Route: 048
  5. ALPRAZOLAM [Concomitant]
     Dosage: UNK, AS NEEDED
  6. MULTI-VITAMIN [Concomitant]
  7. CITRUCEL [Concomitant]
     Dates: start: 20090513

REACTIONS (6)
  - ALANINE AMINOTRANSFERASE INCREASED [None]
  - BLADDER DISORDER [None]
  - CHROMATURIA [None]
  - DECREASED APPETITE [None]
  - HEPATIC STEATOSIS [None]
  - WEIGHT DECREASED [None]
